FAERS Safety Report 9387408 (Version 8)
Quarter: 2014Q2

REPORT INFORMATION
  Report Type: Spontaneous
  Country: US (occurrence: US)
  Receive Date: 20130708
  Receipt Date: 20140606
  Transmission Date: 20141212
  Serious: Yes (Hospitalization, Disabling, Other)
  Sender: FDA-Public Use
  Company Number: US-009507513-1307USA001874

PATIENT
  Sex: Female
  Weight: 58.96 kg

DRUGS (6)
  1. FOSAMAX [Suspect]
     Indication: OSTEOPOROSIS POSTMENOPAUSAL
     Dosage: 10 MG, QD
     Route: 048
     Dates: start: 1999
  2. FOSAMAX [Suspect]
     Dosage: 70 MG, QW
     Route: 048
  3. FOSAMAX PLUS D [Suspect]
     Indication: OSTEOPOROSIS POSTMENOPAUSAL
     Dosage: 70 MG, QW
     Route: 048
     Dates: start: 200510
  4. ALENDRONATE SODIUM [Suspect]
     Indication: OSTEOPOROSIS
     Dosage: 70 MG, QW
     Route: 048
  5. CALCIUM (UNSPECIFIED) (+) VITAMIN D (UNSPECIFIED) [Concomitant]
     Dosage: 600MG CA+ 500IU VIT D, BID
     Dates: start: 2000
  6. FORTEO [Concomitant]
     Indication: OSTEOPOROSIS POSTMENOPAUSAL

REACTIONS (29)
  - Intramedullary rod insertion [Unknown]
  - Osteoarthritis [Not Recovered/Not Resolved]
  - Femur fracture [Unknown]
  - Femur fracture [Unknown]
  - Rib fracture [Unknown]
  - Lumbar vertebral fracture [Unknown]
  - Foot fracture [Recovering/Resolving]
  - Hypothyroidism [Unknown]
  - Impaired healing [Unknown]
  - Spinal fracture [Unknown]
  - Lumbar vertebral fracture [Unknown]
  - Fall [Unknown]
  - Impaired healing [Unknown]
  - Impaired healing [Unknown]
  - Impaired healing [Unknown]
  - Tonsillectomy [Unknown]
  - Cardiac failure congestive [Unknown]
  - Adenoidectomy [Unknown]
  - Blood oestrogen decreased [Unknown]
  - Compression fracture [Unknown]
  - Pathological fracture [Unknown]
  - Vitamin D deficiency [Unknown]
  - Hypercholesterolaemia [Unknown]
  - Rotator cuff syndrome [Unknown]
  - Bursitis [Unknown]
  - Back pain [Not Recovered/Not Resolved]
  - Nausea [Unknown]
  - Constipation [Unknown]
  - Drug ineffective [Unknown]
